FAERS Safety Report 4844518-6 (Version None)
Quarter: 2005Q4

REPORT INFORMATION
  Report Type: 
  Country: None (occurrence: None)
  Receive Date: 20051203
  Receipt Date: 20050803
  Transmission Date: 20060501
  Serious: Yes (Other)
  Sender: FDA-Public Use
  Company Number: PHEH2005US08623

PATIENT
  Age: 61 Year
  Sex: Female

DRUGS (9)
  1. AREDIA [Suspect]
     Indication: BREAST CANCER METASTATIC
     Dosage: VARIOUS REGIMENS
     Dates: start: 19981001, end: 20040301
  2. AREDIA [Suspect]
     Dosage: 90 MG, QMO
     Dates: start: 20040701, end: 20050801
  3. TAXOL [Suspect]
     Indication: BREAST CANCER METASTATIC
     Dosage: 50-80MG/M2 WEEKLY
     Dates: start: 19990601, end: 19991101
  4. TAXOTERE [Suspect]
     Indication: BREAST CANCER METASTATIC
     Dosage: 20-30GM/M2 WEEKLY
     Dates: start: 19991201, end: 20020401
  5. TRASTUZUMAB [Suspect]
     Indication: BREAST CANCER METASTATIC
     Dosage: 2MG/KG WEEKLY
     Dates: start: 19990601
  6. VINORELBINE TARTRATE [Suspect]
     Indication: BREAST CANCER METASTATIC
     Dosage: 10-25MG/M2 WEEKLY
  7. GEMZAR [Suspect]
     Indication: BREAST CANCER METASTATIC
     Dosage: 1000-1500MG/WEEK
     Dates: start: 20050214, end: 20050801
  8. DEXAMETHASONE [Suspect]
     Indication: PREMEDICATION
     Dosage: 4-10MG WEEKLY
     Dates: start: 19990601, end: 20000401
  9. ZOMETA [Suspect]
     Dosage: 3 -4MG INFUSIONS
     Dates: start: 20040419, end: 20040607

REACTIONS (13)
  - BIOPSY BONE ABNORMAL [None]
  - BONE DISORDER [None]
  - BONE SCAN ABNORMAL [None]
  - BONE TRIMMING [None]
  - DIABETES MELLITUS NON-INSULIN-DEPENDENT [None]
  - JAW DISORDER [None]
  - MALIGNANT NEOPLASM PROGRESSION [None]
  - ORAL PAIN [None]
  - ORAL SURGERY [None]
  - OSTEOMYELITIS [None]
  - OSTEONECROSIS [None]
  - RENAL FUNCTION TEST ABNORMAL [None]
  - TOOTH EXTRACTION [None]
